FAERS Safety Report 4886937-8 (Version None)
Quarter: 2006Q1

REPORT INFORMATION
  Report Type: 
  Country: None (occurrence: None)
  Receive Date: 20060118
  Receipt Date: 20051228
  Transmission Date: 20060701
  Serious: Yes (Other)
  Sender: FDA-Public Use
  Company Number: 2005-DE-05675GD

PATIENT
  Sex: Male

DRUGS (1)
  1. CODEINE (CODEINE) [Suspect]
     Indication: PAIN

REACTIONS (1)
  - HALLUCINATION [None]
